FAERS Safety Report 4951990-X (Version None)
Quarter: 2006Q1

REPORT INFORMATION
  Report Type: 
  Country: None (occurrence: None)
  Receive Date: 20060320
  Receipt Date: 20060307
  Transmission Date: 20060701
  Serious: Yes (Other)
  Sender: FDA-Public Use
  Company Number: 2006033869

PATIENT
  Age: 50 Year
  Sex: Female
  Weight: 107 kg

DRUGS (11)
  1. LYRICA [Suspect]
     Indication: ILL-DEFINED DISORDER
     Dosage: 300 MG (DAILY), ORAL
     Route: 048
  2. TOLTERODINE TARTRATE [Concomitant]
  3. IDEOS (CALCIUM CARBONATE, COLECALCIFEROL) [Concomitant]
  4. LEVOTHYROXINE SODIUM [Concomitant]
  5. DURAGESIC [Concomitant]
  6. MOBEC ^BOEHRINGER INGELHEIM^ (MELOXICAM) [Concomitant]
  7. LASIC (FUROSEMIDE) [Concomitant]
  8. MYDOCLAM ^CHOAY LABS.^ (TOLPERISONE HYDROCHLORIDE) [Concomitant]
  9. NORTRILEN (NORTYIPTYLINE HYDROCHLORIDE) [Concomitant]
  10. NEXIUM [Concomitant]
  11. PK-LEVO (BENSERAZIDE HYDROCHLORIDE, LEVODOPA) [Concomitant]

REACTIONS (4)
  - CARDIAC FAILURE [None]
  - MEMORY IMPAIRMENT [None]
  - ORTHOPNOEA [None]
  - PULMONARY CONGESTION [None]
